FAERS Safety Report 7614126-2 (Version None)
Quarter: 2011Q3

REPORT INFORMATION
  Report Type: 
  Country: None (occurrence: None)
  Receive Date: 20110708
  Receipt Date: 20110628
  Transmission Date: 20111222
  Serious: No
  Sender: FDA-Public Use
  Company Number: 2011ZX000284

PATIENT
  Age: 30 Year
  Sex: Female

DRUGS (2)
  1. SUMAVEL DOSEPRO [Suspect]
     Indication: HEADACHE
     Dosage: X1;
     Dates: start: 20110426, end: 20110426
  2. CONTRACEPTIVES (CONTRACEPTIVES) [Suspect]
     Indication: CONTRACEPTION

REACTIONS (4)
  - INJECTION SITE ERYTHEMA [None]
  - INTRACRANIAL VENOUS SINUS THROMBOSIS [None]
  - INJECTION SITE PAPULE [None]
  - INJECTION SITE SWELLING [None]
